FAERS Safety Report 7597996-6 (Version None)
Quarter: 2011Q3

REPORT INFORMATION
  Report Type: 
  Country: None (occurrence: None)
  Receive Date: 20110708
  Receipt Date: 20110704
  Transmission Date: 20111222
  Serious: Yes (Hospitalization)
  Sender: FDA-Public Use
  Company Number: BR-B.I. PHARMACEUTICALS,INC./RIDGEFIELD-2011-BP-16822BP

PATIENT
  Sex: Female
  Weight: 59 kg

DRUGS (6)
  1. SYMBICORT [Concomitant]
     Indication: CHRONIC OBSTRUCTIVE PULMONARY DISEASE
     Route: 048
     Dates: start: 20080101
  2. BEROTEC [Concomitant]
     Indication: CHRONIC OBSTRUCTIVE PULMONARY DISEASE
     Route: 055
     Dates: start: 20100101, end: 20110318
  3. BEROTEC [Concomitant]
     Route: 055
     Dates: start: 20110428, end: 20110428
  4. BEROTEC [Concomitant]
     Route: 055
     Dates: start: 20110607
  5. BEROTEC [Concomitant]
     Route: 055
     Dates: start: 20110504, end: 20110511
  6. TIOTROPIUM BROMIDE [Suspect]
     Indication: CHRONIC OBSTRUCTIVE PULMONARY DISEASE
     Dosage: 2.5 MCG
     Route: 055
     Dates: start: 20110318, end: 20110622

REACTIONS (1)
  - CHRONIC OBSTRUCTIVE PULMONARY DISEASE [None]
